FAERS Safety Report 21455030 (Version 1)
Quarter: 2022Q4

REPORT INFORMATION
  Report Type: Spontaneous
  Country: GB (occurrence: GB)
  Receive Date: 20221014
  Receipt Date: 20221014
  Transmission Date: 20230112
  Serious: Yes (Other)
  Sender: FDA-Public Use
  Company Number: GB-MHRA-TPP15562419C912614YC1664193899006

PATIENT
  Age: 72 Year
  Sex: Female
  Weight: 80 kg

DRUGS (12)
  1. AMOXICILLIN [Suspect]
     Active Substance: AMOXICILLIN
     Indication: Ill-defined disorder
     Dosage: UNK
     Route: 065
     Dates: start: 20220923
  2. AMOXICILLIN [Suspect]
     Active Substance: AMOXICILLIN
     Dosage: UNK
     Route: 065
     Dates: start: 20220926
  3. ACYCLOVIR [Concomitant]
     Active Substance: ACYCLOVIR
     Indication: Ill-defined disorder
     Dosage: 1 DOSAGE FORM, 5 TIMES A DAY (5 TIMES A DAY (1 TABLET 5 TIMES DAILY FOR 5 DAYS STARTING AT))
     Route: 065
     Dates: start: 20211020
  4. AMOXICILLIN [Concomitant]
     Active Substance: AMOXICILLIN
     Indication: Ill-defined disorder
     Dosage: 1 DOSAGE FORM, 3 TIMES A DAY (3 TIMES A DAY)
     Route: 065
     Dates: start: 20220923
  5. ASPIRIN [Concomitant]
     Active Substance: ASPIRIN
     Indication: Ill-defined disorder
     Dosage: 1 DOSAGE FORM, ONCE A DAY (ONCE A DAY (TAKE ONE DAILY AFTER FOOD)
     Route: 065
     Dates: start: 20211020
  6. BETAMETHASONE VALERATE [Concomitant]
     Active Substance: BETAMETHASONE VALERATE
     Indication: Ill-defined disorder
     Dosage: 1 DOSAGE FORM, ONCE A DAY(ONCE DAILY IF NEEDED FOR 2-3 WEEKS)
     Route: 065
     Dates: start: 20220719
  7. COCODAMOL [Concomitant]
     Active Substance: ACETAMINOPHEN\CODEINE PHOSPHATE
     Indication: Ill-defined disorder
     Dosage: UNK, TAKE ONE OR TWO CAPSULES UPTO FOUR TIMES DAILY ...
     Route: 065
     Dates: start: 20220721
  8. EPIPEN [Concomitant]
     Active Substance: EPINEPHRINE
     Indication: Ill-defined disorder
     Dosage: UNK, (USE AS DIRECTED)
     Route: 065
     Dates: start: 20220926
  9. LEVOTHYROXINE [Concomitant]
     Active Substance: LEVOTHYROXINE
     Indication: Ill-defined disorder
     Dosage: 0.5 DOSAGE FORM, ONCE A DAY(HALF DAILY IN COMBINATION WITH 50MCG, TOTAL DAI)
     Route: 065
     Dates: start: 20220419
  10. NORTRIPTYLINE [Concomitant]
     Active Substance: NORTRIPTYLINE
     Indication: Ill-defined disorder
     Dosage: 10 MILLIGRAM, ONCE A DAY (AS DIRECTED BY NEUROLOGIST. 10MG AT NIGHT FOR F...)
     Route: 065
     Dates: start: 20220719
  11. OMEPRAZOLE [Concomitant]
     Active Substance: OMEPRAZOLE
     Indication: Ill-defined disorder
     Dosage: 1 DOSAGE FORM, ONCE A DAY (ONCE A DAY (TAKE ONE DAILY)
     Route: 065
     Dates: start: 20220419
  12. ALBUTEROL [Concomitant]
     Active Substance: ALBUTEROL
     Indication: Ill-defined disorder
     Dosage: 2 DOSAGE FORM, FOUR TIMES/DAY(2 PUFFS FOUR TIMES A DAY WHEN REQUIRED)
     Route: 065
     Dates: start: 20220923

REACTIONS (2)
  - Peripheral swelling [Unknown]
  - Lip swelling [Unknown]

NARRATIVE: CASE EVENT DATE: 20220926
